FAERS Safety Report 18030364 (Version 1)
Quarter: 2020Q3

REPORT INFORMATION
  Report Type: Spontaneous
  Country: US (occurrence: US)
  Receive Date: 20200715
  Receipt Date: 20200715
  Transmission Date: 20201103
  Serious: No
  Sender: FDA-Public Use
  Company Number: US-OPTINOSE US, INC-2020OPT000420

PATIENT
  Age: 78 Year
  Sex: Female
  Weight: 72.64 kg

DRUGS (3)
  1. XHANCE [Suspect]
     Active Substance: FLUTICASONE PROPIONATE
     Indication: SECRETION DISCHARGE
     Route: 045
     Dates: start: 2019, end: 2020
  2. XHANCE [Suspect]
     Active Substance: FLUTICASONE PROPIONATE
     Indication: UPPER-AIRWAY COUGH SYNDROME
     Route: 045
     Dates: start: 202005
  3. XHANCE [Suspect]
     Active Substance: FLUTICASONE PROPIONATE
     Indication: MULTIPLE ALLERGIES

REACTIONS (5)
  - Sinusitis [Recovering/Resolving]
  - Bronchitis [Unknown]
  - Nasal ulcer [Recovering/Resolving]
  - Epistaxis [Recovering/Resolving]
  - Product use in unapproved indication [Unknown]

NARRATIVE: CASE EVENT DATE: 2019
